FAERS Safety Report 24667999 (Version 1)
Quarter: 2024Q4

REPORT INFORMATION
  Report Type: Spontaneous
  Country: CN (occurrence: CN)
  Receive Date: 20241127
  Receipt Date: 20241127
  Transmission Date: 20250115
  Serious: Yes (Other)
  Sender: ROCHE
  Company Number: CN-ROCHE-10000138187

PATIENT
  Age: 43 Year
  Sex: Female

DRUGS (11)
  1. BEVACIZUMAB [Suspect]
     Active Substance: BEVACIZUMAB
     Indication: Adenocarcinoma
     Route: 065
     Dates: start: 202009, end: 202102
  2. PEMETREXED [Suspect]
     Active Substance: PEMETREXED
     Indication: Adenocarcinoma
     Route: 065
     Dates: start: 202009, end: 202102
  3. CARBOPLATIN [Suspect]
     Active Substance: CARBOPLATIN
     Indication: Adenocarcinoma
     Route: 065
     Dates: start: 202009, end: 202102
  4. PEMETREXED [Concomitant]
     Active Substance: PEMETREXED
     Indication: Adenocarcinoma
  5. CISPLATIN [Concomitant]
     Active Substance: CISPLATIN
  6. GEFITINIB [Concomitant]
     Active Substance: GEFITINIB
     Indication: Adenocarcinoma
     Route: 048
     Dates: start: 202001, end: 202009
  7. PACLITAXEL [Concomitant]
     Active Substance: PACLITAXEL
     Dates: start: 202106
  8. FIRMONERTINIB MESYLATE [Concomitant]
     Active Substance: FIRMONERTINIB MESYLATE
     Route: 048
  9. ERLOTINIB [Concomitant]
     Active Substance: ERLOTINIB
     Route: 048
  10. AFATINIB [Concomitant]
     Active Substance: AFATINIB
     Route: 048
  11. TISLELIZUMAB [Concomitant]
     Active Substance: TISLELIZUMAB
     Dates: start: 202105, end: 202112

REACTIONS (2)
  - Disease progression [Not Recovered/Not Resolved]
  - Metastases to lung [Unknown]
